FAERS Safety Report 15170707 (Version 3)
Quarter: 2018Q3

REPORT INFORMATION
  Report Type: Report from Study
  Country: US (occurrence: US)
  Receive Date: 20180720
  Receipt Date: 20180814
  Transmission Date: 20181010
  Serious: Yes (Other)
  Sender: FDA-Public Use
  Company Number: US-ROCHE-2157512

PATIENT
  Sex: Male

DRUGS (2)
  1. RITUXAN [Suspect]
     Active Substance: RITUXIMAB
     Indication: HODGKIN^S DISEASE LYMPHOCYTE DEPLETION TYPE STAGE UNSPECIFIED
     Route: 065
     Dates: start: 20180424
  2. RITUXAN HYCELA [Suspect]
     Active Substance: HYALURONIDASE (HUMAN RECOMBINANT)\RITUXIMAB
     Indication: HODGKIN^S DISEASE LYMPHOCYTE DEPLETION TYPE STAGE UNSPECIFIED
     Route: 058
     Dates: start: 20180424

REACTIONS (3)
  - Heart rate decreased [Unknown]
  - Intentional product use issue [Unknown]
  - Off label use [Unknown]
